FAERS Safety Report 5734036-5 (Version None)
Quarter: 2008Q2

REPORT INFORMATION
  Report Type: 
  Country: None (occurrence: None)
  Receive Date: 20080509
  Receipt Date: 20080430
  Transmission Date: 20081010
  Serious: Yes (Other)
  Sender: FDA-Public Use
  Company Number: GB-PFIZER INC-2008038290

PATIENT
  Age: 40 Year
  Sex: Male

DRUGS (4)
  1. LIPITOR [Suspect]
  2. ALL OTHER THERAPEUTIC PRODUCTS [Concomitant]
  3. BETA BLOCKING AGENTS [Concomitant]
  4. CO-PROXAMOL [Concomitant]

REACTIONS (2)
  - AMNESIA [None]
  - DISTURBANCE IN ATTENTION [None]
